FAERS Safety Report 6010219-4 (Version None)
Quarter: 2008Q4

REPORT INFORMATION
  Report Type: 
  Country: None (occurrence: None)
  Receive Date: 20081218
  Receipt Date: 20071204
  Transmission Date: 20090506
  Serious: No
  Sender: FDA-Public Use
  Company Number: A0698385A

PATIENT
  Age: 52 Year
  Sex: Female

DRUGS (3)
  1. FLONASE [Suspect]
     Dosage: 50MG TWICE PER DAY
     Route: 045
     Dates: start: 20000101, end: 20050101
  2. TOPROL-XL [Concomitant]
  3. DIOVAN [Concomitant]

REACTIONS (1)
  - STAPHYLOCOCCAL INFECTION [None]
